FAERS Safety Report 16028158 (Version 1)
Quarter: 2019Q1

REPORT INFORMATION
  Report Type: Spontaneous
  Country: US (occurrence: US)
  Receive Date: 20190304
  Receipt Date: 20190304
  Transmission Date: 20190418
  Serious: Yes (Disabling, Other)
  Sender: FDA-Public Use
  Company Number: US-SA-2019SA054475

PATIENT

DRUGS (1)
  1. GOLD BOND EXTRA STRENGTH [Suspect]
     Active Substance: MENTHOL
     Dosage: UNK

REACTIONS (4)
  - Pain [Unknown]
  - Mesothelioma [Unknown]
  - Deformity [Unknown]
  - Impaired work ability [Unknown]
